FAERS Safety Report 9932363 (Version 2)
Quarter: 2014Q1

REPORT INFORMATION
  Report Type: Spontaneous
  Country: US (occurrence: US)
  Receive Date: 20140228
  Receipt Date: 20140228
  Transmission Date: 20141002
  Serious: No
  Sender: FDA-Public Use
  Company Number: US-ABBVIE-13P-163-1169627-00

PATIENT
  Age: 75 Year
  Sex: Male
  Weight: 72.64 kg

DRUGS (2)
  1. ANDROGEL [Suspect]
     Indication: BLOOD TESTOSTERONE DECREASED
  2. ANDROGEL [Suspect]

REACTIONS (2)
  - Rash [Recovered/Resolved]
  - Rash [Unknown]
